FAERS Safety Report 9118705 (Version 2)
Quarter: 2013Q1

REPORT INFORMATION
  Report Type: Report from Study
  Country: US (occurrence: US)
  Receive Date: 20130226
  Receipt Date: 20130304
  Transmission Date: 20140127
  Serious: No
  Sender: FDA-Public Use
  Company Number: US-VERTEX PHARMACEUTICALS INC.-2013-002403

PATIENT
  Age: 64 Year
  Sex: Female
  Weight: 63 kg

DRUGS (13)
  1. VX-950 (TELAPREVIR) [Suspect]
     Indication: HEPATITIS C
     Dosage: 750 MG, TID
     Route: 048
  2. PEGASYS [Suspect]
     Indication: HEPATITIS C
     Dosage: UNK
  3. RIBAVIRIN [Suspect]
     Indication: HEPATITIS C
     Dosage: 200 MG
  4. VALACYCLOVIR HYDROCHLORIDE [Concomitant]
     Dosage: 1 G
  5. ALPRAZOLAM [Concomitant]
     Dosage: 0.5 MG, UNK
  6. ETODOLAC [Concomitant]
     Dosage: 200 MG, UNK
  7. QVAR [Concomitant]
     Dosage: 80 ?G
  8. NASONEX [Concomitant]
     Dosage: 50 ?G/ AC
  9. VITAMIN B12 [Concomitant]
     Dosage: 1000 CR
  10. MILK THISTLE [Concomitant]
  11. CODEINE SULFATE [Concomitant]
     Dosage: 15 MG
  12. PRILOSEC [Concomitant]
     Dosage: 10 MG
  13. PROZAC [Concomitant]
     Dosage: 10 MG, UNK

REACTIONS (8)
  - Back pain [Unknown]
  - Burning sensation [Unknown]
  - Chills [Unknown]
  - Rash papular [Unknown]
  - Haemorrhoidal haemorrhage [Unknown]
  - Nausea [Unknown]
  - Vomiting [Unknown]
  - Diarrhoea [Unknown]
